FAERS Safety Report 24199851 (Version 1)
Quarter: 2024Q3

REPORT INFORMATION
  Report Type: Report from Study
  Country: BR (occurrence: BR)
  Receive Date: 20240812
  Receipt Date: 20240812
  Transmission Date: 20241016
  Serious: Yes (Other)
  Sender: UCB
  Company Number: BR-UCBSA-2024039259

PATIENT
  Age: 53 Year
  Sex: Female
  Weight: 94 kg

DRUGS (1)
  1. CERTOLIZUMAB PEGOL [Suspect]
     Active Substance: CERTOLIZUMAB PEGOL
     Indication: Rheumatoid arthritis
     Dosage: UNK
     Route: 058
     Dates: start: 202312, end: 20240228

REACTIONS (5)
  - Pneumonia [Recovered/Resolved]
  - Immunodeficiency [Unknown]
  - Herpes virus infection [Recovered/Resolved]
  - Oesophagitis [Recovered/Resolved]
  - Infection [Recovered/Resolved]

NARRATIVE: CASE EVENT DATE: 20240201
